FAERS Safety Report 6420545-2 (Version None)
Quarter: 2009Q4

REPORT INFORMATION
  Report Type: 
  Country: None (occurrence: None)
  Receive Date: 20091027
  Receipt Date: 20091016
  Transmission Date: 20100525
  Serious: Yes (Life-Threatening, Hospitalization)
  Sender: FDA-Public Use
  Company Number: 2009AL006704

PATIENT
  Age: 43 Year
  Sex: Female

DRUGS (7)
  1. FEVERALL [Suspect]
     Dosage: IV
     Route: 042
     Dates: start: 20090807, end: 20090807
  2. PROPOFOL [Concomitant]
  3. FENTANYL [Concomitant]
  4. MORPHINE [Concomitant]
  5. SEVOFLURANE [Concomitant]
  6. ONDANSETRON [Concomitant]
  7. DEXAMETHASONE [Concomitant]

REACTIONS (4)
  - GENERALISED ERYTHEMA [None]
  - HYPOTENSION [None]
  - OEDEMA [None]
  - TACHYCARDIA [None]
